FAERS Safety Report 10273312 (Version 1)
Quarter: 2014Q2

REPORT INFORMATION
  Report Type: Spontaneous
  Country: US (occurrence: None)
  Receive Date: 20140630
  Receipt Date: 20140630
  Transmission Date: 20141212
  Serious: Yes (Other)
  Sender: FDA-Public Use
  Company Number: None

PATIENT
  Sex: Female

DRUGS (2)
  1. LOVASTATIN [Suspect]
     Route: 048
     Dates: start: 20121119
  2. DILTIAZEM [Suspect]
     Route: 048
     Dates: start: 20121119

REACTIONS (1)
  - Myalgia [None]
